FAERS Safety Report 9070458 (Version 1)
Quarter: 2013Q1

REPORT INFORMATION
  Report Type: Report from Study
  Country: US (occurrence: US)
  Receive Date: 20130129
  Receipt Date: 20130129
  Transmission Date: 20140127
  Serious: No
  Sender: FDA-Public Use
  Company Number: US-ABBOTT-12P-163-0921442-00

PATIENT
  Sex: Male
  Weight: 106.69 kg

DRUGS (3)
  1. HUMIRA 40 MG/ 0.8 ML PRE-FILLED SYRINGE [Suspect]
     Indication: PSORIATIC ARTHROPATHY
     Route: 058
     Dates: start: 2008, end: 2011
  2. METHOTREXATE [Concomitant]
     Indication: PSORIATIC ARTHROPATHY
  3. HYDROCODONE BITARTRATE AND ACETAMINOPHEN [Concomitant]
     Indication: PAIN

REACTIONS (1)
  - Psoriasis [Not Recovered/Not Resolved]
